FAERS Safety Report 19028015 (Version 1)
Quarter: 2021Q1

REPORT INFORMATION
  Report Type: Spontaneous
  Country: US (occurrence: US)
  Receive Date: 20210318
  Receipt Date: 20210318
  Transmission Date: 20210420
  Serious: Yes (Other)
  Sender: FDA-Public Use
  Company Number: US-CATALYST PHARMACEUTICALS, INC-2021CAT00017

PATIENT
  Sex: Female
  Weight: 61.24 kg

DRUGS (6)
  1. FIRDAPSE [Suspect]
     Active Substance: AMIFAMPRIDINE PHOSPHATE
     Dosage: 20 MG, 4X/DAY
     Dates: start: 202007
  2. UNSPECIFIED THYROID MEDICATION [Concomitant]
     Active Substance: UNSPECIFIED INGREDIENT
  3. PEPCID [Concomitant]
     Active Substance: FAMOTIDINE
  4. VITAMIN D [Concomitant]
     Active Substance: VITAMIN D NOS
  5. TRAZODONE [Concomitant]
     Active Substance: TRAZODONE HYDROCHLORIDE
     Dosage: ^AT NIGHT^
  6. FIRDAPSE [Suspect]
     Active Substance: AMIFAMPRIDINE PHOSPHATE
     Indication: MYASTHENIC SYNDROME
     Dosage: UNK
     Dates: start: 20200201, end: 202007

REACTIONS (2)
  - Asthenia [Unknown]
  - Cataract nuclear [Recovered/Resolved]

NARRATIVE: CASE EVENT DATE: 2020
